FAERS Safety Report 15687860 (Version 1)
Quarter: 2018Q4

REPORT INFORMATION
  Report Type: Spontaneous
  Country: US (occurrence: US)
  Receive Date: 20181205
  Receipt Date: 20181205
  Transmission Date: 20190205
  Serious: No
  Sender: FDA-Public Use
  Company Number: US-ROCHE-2180170

PATIENT
  Age: 16 Month
  Sex: Male

DRUGS (1)
  1. ALTEPLASE. [Suspect]
     Active Substance: ALTEPLASE
     Indication: CHYLOTHORAX
     Route: 065

REACTIONS (3)
  - Intentional product use issue [Unknown]
  - Haemoglobin decreased [Unknown]
  - Off label use [Unknown]
